FAERS Safety Report 12709471 (Version 1)
Quarter: 2016Q3

REPORT INFORMATION
  Report Type: Spontaneous
  Country: US (occurrence: None)
  Receive Date: 20160901
  Receipt Date: 20160901
  Transmission Date: 20161109
  Serious: No
  Sender: FDA-Public Use
  Company Number: None

PATIENT

DRUGS (1)
  1. SODIUM CHLORIDE, 0.9% HOSPIRA [Suspect]
     Active Substance: SODIUM CHLORIDE
     Route: 051

REACTIONS (2)
  - Product quality issue [None]
  - Product contamination [None]
